FAERS Safety Report 6837055-0 (Version None)
Quarter: 2010Q3

REPORT INFORMATION
  Report Type: 
  Country: None (occurrence: None)
  Receive Date: 20100713
  Receipt Date: 20070504
  Transmission Date: 20110219
  Serious: No
  Sender: FDA-Public Use
  Company Number: US-PFIZER INC-2007037643

PATIENT
  Sex: Female
  Weight: 53.636 kg

DRUGS (7)
  1. CHANTIX [Suspect]
     Indication: SMOKING CESSATION THERAPY
     Dates: start: 20070401
  2. PANADEINE CO [Concomitant]
  3. SOMA [Concomitant]
  4. DIAZEPAM [Concomitant]
  5. ZOLOFT [Concomitant]
  6. LOTREL [Concomitant]
  7. PROTONIX [Concomitant]

REACTIONS (4)
  - FLATULENCE [None]
  - NAUSEA [None]
  - THINKING ABNORMAL [None]
  - VOMITING [None]
